FAERS Safety Report 4552190-8 (Version None)
Quarter: 2004Q4

REPORT INFORMATION
  Report Type: 
  Country: None (occurrence: None)
  Receive Date: 20041217
  Receipt Date: 20040817
  Transmission Date: 20050328
  Serious: No
  Sender: FDA-Public Use
  Company Number: 2004-BP-06236BP(1)

PATIENT
  Age: 56 Year
  Sex: Female
  Weight: 57.6 kg

DRUGS (6)
  1. SPIRIVA [Suspect]
     Indication: EMPHYSEMA
     Dosage: 18 MCG (18 MCG), IN
     Route: 055
     Dates: start: 20040709
  2. SPIRIVA [Suspect]
  3. FOSAMAX [Concomitant]
  4. ALBUTEROL [Concomitant]
  5. SUDAFED 12 HOUR [Concomitant]
  6. COMBIVENT [Concomitant]

REACTIONS (1)
  - DRUG INEFFECTIVE [None]
